FAERS Safety Report 14364167 (Version 1)
Quarter: 2018Q1

REPORT INFORMATION
  Report Type: Spontaneous
  Country: US (occurrence: US)
  Receive Date: 20180108
  Receipt Date: 20180108
  Transmission Date: 20180509
  Serious: No
  Sender: FDA-Public Use
  Company Number: US-SHIRE-US201726795

PATIENT
  Age: 80 Year
  Sex: Female

DRUGS (6)
  1. LATANOPROST. [Concomitant]
     Active Substance: LATANOPROST
     Indication: PRODUCT USED FOR UNKNOWN INDICATION
  2. DORZOLOMIDE HYDROCHLORIDE [Concomitant]
     Indication: PRODUCT USED FOR UNKNOWN INDICATION
  3. XIIDRA [Suspect]
     Active Substance: LIFITEGRAST
     Indication: DRY EYE
     Dosage: UNK, UNKNOWN
     Route: 047
  4. DUREZOL [Concomitant]
     Active Substance: DIFLUPREDNATE
     Indication: RETINAL OEDEMA
  5. XIIDRA [Suspect]
     Active Substance: LIFITEGRAST
     Dosage: UNK, 2X/DAY:BID
     Route: 047
     Dates: start: 20170208
  6. TIMOLOL. [Concomitant]
     Active Substance: TIMOLOL
     Indication: PRODUCT USED FOR UNKNOWN INDICATION

REACTIONS (4)
  - Drug ineffective [Unknown]
  - Visual impairment [Unknown]
  - Instillation site reaction [Unknown]
  - Instillation site irritation [Unknown]

NARRATIVE: CASE EVENT DATE: 201709
